FAERS Safety Report 8814128 (Version 1)
Quarter: 2012Q4

REPORT INFORMATION
  Report Type: Spontaneous
  Country: GB (occurrence: None)
  Receive Date: 20120925
  Receipt Date: 20120925
  Transmission Date: 20130627
  Serious: Yes (Life-Threatening, Hospitalization, Disabling)
  Sender: FDA-Public Use
  Company Number: 2012-003368

PATIENT
  Age: 16 Year
  Sex: Male
  Weight: 39.8 kg

DRUGS (4)
  1. MESALAZINE [Suspect]
     Dosage: 1 g. three times daily, Oral;
     Route: 048
     Dates: start: 200901
  2. AZATHIOPRINE [Suspect]
     Route: 048
     Dates: start: 200810
  3. HUMIRA [Suspect]
     Dosage: 80 mg, Unknown, subcutaneous
     Route: 058
     Dates: start: 20101109
  4. REMICADE [Suspect]
     Dosage: 1 dose form, every two months , Intravenous
     Route: 042
     Dates: start: 200906

REACTIONS (2)
  - Testicular germ cell cancer [None]
  - Apparent life threatening event [None]
